FAERS Safety Report 5962083-7 (Version None)
Quarter: 2008Q4

REPORT INFORMATION
  Report Type: 
  Country: None (occurrence: None)
  Receive Date: 20081121
  Receipt Date: 20081112
  Transmission Date: 20090506
  Serious: Yes (Other)
  Sender: FDA-Public Use
  Company Number: PHHY2008BR28247

PATIENT
  Age: 4 Year
  Sex: Male

DRUGS (4)
  1. TRILEPTAL [Suspect]
     Indication: EPILEPSY
     Dosage: 5.5 ML EVERY 8 HOURS
     Route: 048
  2. TOPIRAMATE [Concomitant]
     Indication: EPILEPSY
     Dosage: 1 TABLET DAILY
     Route: 048
     Dates: start: 20080701, end: 20081001
  3. TOPIRAMATE [Concomitant]
     Dosage: 2 TABLETS DAILY (NIGHT)
     Route: 048
     Dates: start: 20081001
  4. PARACETAMOL+DIPHENHYDRAMINE+PSEUDOEPHEDRINE+DROPOPIZINE [Suspect]
     Indication: COUGH
     Dosage: 2.5 ML
     Route: 048

REACTIONS (5)
  - COUGH [None]
  - HALLUCINATION [None]
  - SOMNOLENCE [None]
  - TACHYCARDIA [None]
  - TACHYPNOEA [None]
